FAERS Safety Report 5531876-2 (Version None)
Quarter: 2007Q4

REPORT INFORMATION
  Report Type: 
  Country: None (occurrence: None)
  Receive Date: 20071119
  Receipt Date: 20070803
  Transmission Date: 20080405
  Serious: No
  Sender: FDA-Public Use
  Company Number: TPA2007A01646

PATIENT
  Age: 59 Year
  Sex: Male
  Weight: 79.3795 kg

DRUGS (12)
  1. ROZEREM [Suspect]
     Indication: MIDDLE INSOMNIA
     Dosage: 8 MG, HS, PER ORAL
     Route: 048
     Dates: start: 20070727
  2. ALPRAZOLAM (ALPRAZOLAM) (0.5 MILLIGRAM, TABLETS) [Concomitant]
  3. PROVIGIL [Concomitant]
  4. LEVOXYL [Concomitant]
  5. NIASPAN [Concomitant]
  6. PAXIL [Concomitant]
  7. METFORMIN (METFORMIN) [Concomitant]
  8. GLIMEPIRIDE [Concomitant]
  9. OMEPRAZOLE [Concomitant]
  10. HYOSCYAMINE (HYOSCYAMINE) [Concomitant]
  11. UNKNOWN KIDNEY ATONE MEDICATION(ALL OTHER THERAPEUTIC PRODUCTS) [Concomitant]
  12. AMILORIDE (AMILORIDE) [Concomitant]

REACTIONS (3)
  - DEREALISATION [None]
  - DIZZINESS [None]
  - DRUG INEFFECTIVE [None]
